FAERS Safety Report 20187419 (Version 4)
Quarter: 2022Q4

REPORT INFORMATION
  Report Type: Report from Study
  Country: LB (occurrence: LB)
  Receive Date: 20211215
  Receipt Date: 20221223
  Transmission Date: 20230112
  Serious: Yes (Hospitalization)
  Sender: FDA-Public Use
  Company Number: LB-NOVARTISPH-NVSC2021LB282371

PATIENT
  Age: 10 Year
  Sex: Female
  Weight: 25 kg

DRUGS (2)
  1. OMNITROPE [Suspect]
     Active Substance: SOMATROPIN
     Indication: Turner^s syndrome
     Dosage: 10 MG
     Route: 058
     Dates: start: 20211004
  2. PROFINAL [Concomitant]
     Indication: Pain
     Dosage: UNK
     Route: 048
     Dates: start: 20211206, end: 20211216

REACTIONS (8)
  - Gastroenteritis [Recovered/Resolved]
  - Pyrexia [Recovering/Resolving]
  - Diarrhoea [Recovering/Resolving]
  - Vomiting [Recovering/Resolving]
  - Abdominal pain [Unknown]
  - Muscle spasms [Unknown]
  - Nausea [Unknown]
  - Product availability issue [Unknown]

NARRATIVE: CASE EVENT DATE: 20211206
